FAERS Safety Report 9733546 (Version 2)
Quarter: 2013Q4

REPORT INFORMATION
  Report Type: Report from Study
  Country: KR (occurrence: KR)
  Receive Date: 20131205
  Receipt Date: 20131205
  Transmission Date: 20140711
  Serious: Yes (Hospitalization)
  Sender: FDA-Public Use
  Company Number: KR-CELGENEUS-286-50794-13053214

PATIENT
  Age: 65 Year
  Sex: Male
  Weight: 50 kg

DRUGS (47)
  1. VIDAZA [Suspect]
     Indication: MYELODYSPLASTIC SYNDROME
     Dosage: 120 MILLIGRAM
     Route: 065
     Dates: start: 20130225
  2. VIDAZA [Suspect]
     Dosage: 15 MILLIGRAM/SQ. METER
     Route: 065
     Dates: start: 20130515, end: 20130518
  3. VIDAZA [Suspect]
     Dosage: 120 MILLIGRAM
     Route: 065
     Dates: start: 20130321, end: 20130404
  4. COLYTE [Concomitant]
     Indication: COLONOSCOPY
     Dosage: 274.3 GRAM
     Route: 048
     Dates: start: 20130503, end: 20130503
  5. PANTOLOC [Concomitant]
     Indication: GASTRITIS
     Dosage: 80 MILLIGRAM
     Route: 041
     Dates: start: 20130504, end: 20130504
  6. TAMSNAL [Concomitant]
     Indication: BENIGN PROSTATIC HYPERPLASIA
     Dosage: .2 MILLIGRAM
     Route: 048
     Dates: start: 20130421
  7. FLAGYL [Concomitant]
     Indication: ANTI-INFECTIVE THERAPY
     Dosage: 1500 MILLIGRAM
     Route: 041
     Dates: start: 20130420, end: 20130422
  8. FLAGYL [Concomitant]
     Dosage: 500 MILLIGRAM
     Route: 065
     Dates: start: 20130422, end: 20130422
  9. FLAGYL [Concomitant]
     Route: 065
     Dates: start: 20130419, end: 20130421
  10. NEUTROGIN [Concomitant]
     Indication: NEUTROPENIA
     Route: 058
     Dates: start: 20130421, end: 20130421
  11. PETHIDINE [Concomitant]
     Indication: PAIN MANAGEMENT
     Route: 041
     Dates: start: 20130421, end: 20130421
  12. PETHIDINE [Concomitant]
     Route: 041
     Dates: start: 20130503, end: 20130503
  13. GASOCOL [Concomitant]
     Indication: ENDOSCOPY
     Route: 048
     Dates: start: 20130503, end: 20130503
  14. ALGIRON [Concomitant]
     Indication: GASTRITIS
     Route: 065
     Dates: start: 20130503, end: 20130503
  15. PHENIRAMIN [Concomitant]
     Indication: TRANSFUSION
     Route: 065
     Dates: start: 20130519, end: 20130521
  16. PHENIRAMIN [Concomitant]
     Route: 065
     Dates: start: 20130503, end: 20130503
  17. CEFTRIAXONE [Concomitant]
     Indication: ANTI-INFECTIVE THERAPY
     Dosage: 2 GRAM
     Route: 041
     Dates: start: 20130419, end: 20130421
  18. CEFTRIAXONE [Concomitant]
     Dosage: 2 GRAM
     Route: 041
     Dates: start: 20130503, end: 20130503
  19. FLEET ENEMA [Concomitant]
     Indication: SIGMOIDOSCOPY
     Route: 065
     Dates: start: 20130503, end: 20130503
  20. DEXTROSE [Concomitant]
     Indication: FLUID REPLACEMENT
     Dosage: 1000 MILLILITER
     Route: 041
     Dates: start: 20130504, end: 20130509
  21. DEXTROSE [Concomitant]
     Route: 041
     Dates: start: 20130419, end: 20130422
  22. CURAN [Concomitant]
     Indication: GASTRITIS
     Route: 065
     Dates: start: 20130504, end: 20130506
  23. CURAN [Concomitant]
     Route: 065
     Dates: start: 20130507, end: 20130507
  24. CURAN [Concomitant]
     Route: 048
     Dates: start: 20130508, end: 20130519
  25. AGIO [Concomitant]
     Indication: CONSTIPATION
     Route: 065
     Dates: start: 20130507, end: 20130518
  26. MACPERAN [Concomitant]
     Indication: GASTROINTESTINAL MOTILITY DISORDER
     Route: 048
     Dates: start: 20130513, end: 20130516
  27. ASCORBIC ACID [Concomitant]
     Indication: MALNUTRITION
     Route: 065
     Dates: start: 20130419, end: 20130422
  28. ACLOFEN [Concomitant]
     Indication: PAIN MANAGEMENT
     Dosage: 400 MILLIGRAM
     Route: 048
     Dates: start: 20130419, end: 20130421
  29. ACLOFEN [Concomitant]
     Route: 048
     Dates: start: 20130422, end: 20130422
  30. BEECOM HEXA [Concomitant]
     Indication: MALNUTRITION
     Route: 065
     Dates: start: 20130419, end: 20130422
  31. MAGMIL [Concomitant]
     Indication: CONSTIPATION
     Dosage: 4000 MILLIGRAM
     Route: 048
     Dates: start: 20130417, end: 20130421
  32. MAGMIL [Concomitant]
     Route: 065
     Dates: start: 20130422, end: 20130429
  33. MAGMIL [Concomitant]
     Route: 065
     Dates: start: 20130507, end: 20130507
  34. MAGMIL [Concomitant]
     Dosage: 1500 MILLIGRAM
     Route: 065
     Dates: start: 20130508, end: 20130519
  35. CEFACLOR [Concomitant]
     Indication: ANTI-INFECTIVE THERAPY
     Route: 048
     Dates: start: 20130422, end: 20130428
  36. KCL [Concomitant]
     Indication: BLOOD ELECTROLYTES ABNORMAL
     Route: 065
     Dates: start: 20130504, end: 20130507
  37. SODIUM CHLORIDE [Concomitant]
     Indication: PROPHYLAXIS
     Route: 065
     Dates: start: 20130503, end: 20130505
  38. SODIUM CHLORIDE [Concomitant]
     Route: 065
     Dates: start: 20130419, end: 20130421
  39. SODIUM CHLORIDE [Concomitant]
     Route: 065
     Dates: start: 20130503, end: 20130503
  40. SODIUM CHLORIDE [Concomitant]
     Route: 065
     Dates: start: 20130504, end: 20130504
  41. ONSERAN [Concomitant]
     Indication: ANTIEMETIC SUPPORTIVE CARE
     Route: 041
     Dates: start: 20130513, end: 20130519
  42. LIDOCAINE [Concomitant]
     Indication: PAIN MANAGEMENT
     Route: 041
     Dates: start: 20130503, end: 20130503
  43. VARIDASE [Concomitant]
     Indication: ANTIINFLAMMATORY THERAPY
     Route: 048
     Dates: start: 20130419, end: 20130421
  44. VARIDASE [Concomitant]
     Route: 048
     Dates: start: 20130420, end: 20130421
  45. GASTER [Concomitant]
     Indication: PROPHYLAXIS AGAINST GASTROINTESTINAL ULCER
     Dosage: 800 MILLIGRAM
     Route: 041
  46. CIMETROPIUM BROMIDE [Concomitant]
     Indication: PRODUCT USED FOR UNKNOWN INDICATION
     Dosage: 5 MILLIGRAM
     Route: 041
     Dates: start: 20130503, end: 20130503
  47. KETORA [Concomitant]
     Indication: PAIN MANAGEMENT
     Route: 065
     Dates: start: 20130420, end: 20130420

REACTIONS (3)
  - Small intestinal ulcer haemorrhage [Recovered/Resolved with Sequelae]
  - Haematochezia [Recovered/Resolved]
  - Anal abscess [Recovered/Resolved]
